FAERS Safety Report 21768762 (Version 1)
Quarter: 2022Q4

REPORT INFORMATION
  Report Type: Spontaneous
  Country: US (occurrence: US)
  Receive Date: 20221222
  Receipt Date: 20221222
  Transmission Date: 20230113
  Serious: Yes (Other)
  Sender: FDA-Public Use
  Company Number: US-PURDUE-USA-2020-0205945

PATIENT

DRUGS (5)
  1. DILAUDID [Suspect]
     Active Substance: HYDROMORPHONE HYDROCHLORIDE
     Indication: Analgesic therapy
     Dosage: UNKNOWN DOSAGE
     Route: 048
  2. HYDROMORPHONE HYDROCHLORIDE [Suspect]
     Active Substance: HYDROMORPHONE HYDROCHLORIDE
     Indication: Product used for unknown indication
     Dosage: UNKNOWN DOSAGE
     Route: 048
  3. HYDROCODONE BITARTRATE AND ACETAMINOPHEN [Suspect]
     Active Substance: ACETAMINOPHEN\HYDROCODONE BITARTRATE
     Indication: Product used for unknown indication
     Dosage: UNKNOWN DOSAGE
     Route: 048
  4. TRAMADOL [Suspect]
     Active Substance: TRAMADOL
     Indication: Product used for unknown indication
     Dosage: UNKNOWN DOSAGE
     Route: 048
  5. FENTANYL [Suspect]
     Active Substance: FENTANYL
     Indication: Analgesic therapy
     Dosage: UNKNOWN DOSAGE
     Route: 065

REACTIONS (3)
  - Drug dependence [Unknown]
  - Drug withdrawal syndrome [Unknown]
  - Depression [Unknown]
